FAERS Safety Report 15673246 (Version 3)
Quarter: 2019Q1

REPORT INFORMATION
  Report Type: Spontaneous
  Country: US (occurrence: US)
  Receive Date: 20181129
  Receipt Date: 20190211
  Transmission Date: 20190417
  Serious: No
  Sender: FDA-Public Use
  Company Number: US-PFIZER INC-2018480070

PATIENT
  Sex: Female

DRUGS (1)
  1. PROPOFOL. [Suspect]
     Active Substance: PROPOFOL
     Indication: LIGHT ANAESTHESIA
     Dosage: 10 MG PER ML AND 20 ML IS THE SIZE (ONCE AT PROCEDURE]
     Route: 042
     Dates: start: 20181113, end: 20181114

REACTIONS (2)
  - Agitation [Unknown]
  - Cough [Recovered/Resolved]

NARRATIVE: CASE EVENT DATE: 20181113
